FAERS Safety Report 5636046-5 (Version None)
Quarter: 2008Q1

REPORT INFORMATION
  Report Type: 
  Country: None (occurrence: None)
  Receive Date: 20080225
  Receipt Date: 20080213
  Transmission Date: 20080703
  Serious: Yes (Life-Threatening)
  Sender: FDA-Public Use
  Company Number: DE-WYE-G01052908

PATIENT
  Age: 41 Year
  Sex: Male

DRUGS (3)
  1. TREVILOR RETARD [Interacting]
     Route: 048
     Dates: start: 20071101
  2. ASPIRIN [Interacting]
     Route: 048
     Dates: start: 20071226
  3. DOXEPIN HCL [Suspect]
     Route: 048
     Dates: start: 20071001

REACTIONS (3)
  - ANAPHYLACTIC REACTION [None]
  - DRUG INTERACTION [None]
  - HEPATIC ENZYME INCREASED [None]
